FAERS Safety Report 16020585 (Version 1)
Quarter: 2019Q1

REPORT INFORMATION
  Report Type: Spontaneous
  Country: CA (occurrence: CA)
  Receive Date: 20190301
  Receipt Date: 20190301
  Transmission Date: 20190418
  Serious: Yes (Other)
  Sender: FDA-Public Use
  Company Number: CA-AUROBINDO-AUR-APL-2019-010655

PATIENT

DRUGS (2)
  1. CLINDAMYCIN. [Suspect]
     Active Substance: CLINDAMYCIN
     Indication: ABSCESS
     Dosage: UNK
     Route: 065
  2. STELARA [Suspect]
     Active Substance: USTEKINUMAB
     Indication: CROHN^S DISEASE
     Dosage: 90 MILLIGRAM, EVERY 8 WEEKS
     Route: 058

REACTIONS (4)
  - Subcutaneous abscess [Recovered/Resolved]
  - Pruritus generalised [Recovered/Resolved]
  - Arthropod bite [Recovered/Resolved]
  - Diarrhoea [Recovered/Resolved]
